FAERS Safety Report 4679483-8 (Version None)
Quarter: 2005Q2

REPORT INFORMATION
  Report Type: 
  Country: None (occurrence: None)
  Receive Date: 20050602
  Receipt Date: 20050520
  Transmission Date: 20051028
  Serious: Yes (Death)
  Sender: FDA-Public Use
  Company Number: FR-SANOFI-SYNTHELABO-A02200501374

PATIENT

DRUGS (2)
  1. PLAQUENIL [Suspect]
     Indication: MUSCULOSKELETAL PAIN
     Dosage: UNK
     Route: 064
     Dates: start: 20040612, end: 20040627
  2. CORTANCYL [Suspect]
     Indication: MUSCULOSKELETAL PAIN
     Route: 064
     Dates: start: 20040612, end: 20040715

REACTIONS (4)
  - ABORTION SPONTANEOUS [None]
  - DRUG EXPOSURE DURING PREGNANCY [None]
  - INTRA-UTERINE DEATH [None]
  - MULTIPLE CONGENITAL ABNORMALITIES [None]
